FAERS Safety Report 25277463 (Version 7)
Quarter: 2025Q3

REPORT INFORMATION
  Report Type: Spontaneous
  Country: JP (occurrence: JP)
  Receive Date: 20250507
  Receipt Date: 20250917
  Transmission Date: 20251020
  Serious: Yes (Hospitalization)
  Sender: ORGANON
  Company Number: JP-JT-EVA202502084Dermavant Sciences Inc.

PATIENT
  Age: 78 Year
  Sex: Male

DRUGS (5)
  1. VTAMA [Suspect]
     Active Substance: TAPINAROF
     Indication: Psoriasis
     Dosage: UNK, QD
     Route: 061
     Dates: start: 20250108, end: 20250407
  2. OTEZLA [Suspect]
     Active Substance: APREMILAST
     Indication: Psoriasis
     Dosage: 30 MILLIGRAM, QD
     Route: 048
     Dates: start: 2016, end: 20250315
  3. CINAL [ASCORBIC ACID;CALCIUM PANTOTHENATE] [Concomitant]
     Dosage: 200 MILLIGRAM, Q8H
     Route: 048
     Dates: start: 20181106
  4. LANSOPRAZOLE [Concomitant]
     Active Substance: LANSOPRAZOLE
     Dosage: 15 MILLIGRAM, QD
     Route: 048
     Dates: start: 20230308
  5. CAMPHOR\MENTHOL\METHYL SALICYLATE [Concomitant]
     Active Substance: CAMPHOR\MENTHOL\METHYL SALICYLATE
     Dosage: 100 GRAM, QD (TAP)
     Route: 062
     Dates: start: 20190605

REACTIONS (6)
  - Skin haemorrhage [Unknown]
  - Pain of skin [Unknown]
  - Systemic contact dermatitis [Recovered/Resolved]
  - Dizziness [Unknown]
  - Liver disorder [Unknown]
  - Nausea [Unknown]

NARRATIVE: CASE EVENT DATE: 20250301
